FAERS Safety Report 17953600 (Version 1)
Quarter: 2020Q2

REPORT INFORMATION
  Report Type: Report from Study
  Country: HU (occurrence: HU)
  Receive Date: 20200628
  Receipt Date: 20200628
  Transmission Date: 20200714
  Serious: Yes (Hospitalization, Other)
  Sender: FDA-Public Use
  Company Number: HU-PFIZER INC-2020238939

PATIENT
  Age: 62 Year
  Sex: Male

DRUGS (5)
  1. FRONTIN [Concomitant]
     Active Substance: ALPRAZOLAM
     Dosage: 0.25 UNK
     Route: 048
  2. CARDURA [Concomitant]
     Active Substance: DOXAZOSIN MESYLATE
     Indication: HYPERTENSION
     Dosage: 4 MG, 1X/DAY (QD)
     Route: 048
  3. PIPERACILLIN/TAZOBACTAM [Suspect]
     Active Substance: PIPERACILLIN SODIUM\TAZOBACTAM SODIUM
     Dosage: UNK
     Route: 065
     Dates: end: 20200525
  4. COSENTYX [Suspect]
     Active Substance: SECUKINUMAB
     Indication: PSORIASIS
     Dosage: 300 MG, EVERY 4 WEEKS (Q4W)
     Route: 058
     Dates: start: 20191206
  5. COVEREX AS [Concomitant]
     Active Substance: PERINDOPRIL ARGININE
     Dosage: 5 MG, 1X/DAY (IN THE EVENING)
     Route: 048

REACTIONS (6)
  - Staphylococcal infection [Recovering/Resolving]
  - Hypokalaemia [Recovering/Resolving]
  - Pneumonia [Recovering/Resolving]
  - Hypernatraemia [Recovering/Resolving]
  - Alcohol withdrawal syndrome [Recovering/Resolving]
  - Delirium tremens [Recovering/Resolving]

NARRATIVE: CASE EVENT DATE: 20200507
